FAERS Safety Report 6248516-X (Version None)
Quarter: 2009Q2

REPORT INFORMATION
  Report Type: 
  Country: None (occurrence: None)
  Receive Date: 20090624
  Receipt Date: 20090624
  Transmission Date: 20091009
  Serious: No
  Sender: FDA-Public Use
  Company Number: None

PATIENT
  Sex: Female
  Weight: 55.3388 kg

DRUGS (4)
  1. OMEPRAZOLE [Suspect]
     Indication: ABDOMINAL PAIN UPPER
     Dosage: 1 CAPSULE 1 BEFORE MEAL MORNING ORAL
     Route: 048
     Dates: start: 20090517
  2. OMEPRAZOLE [Suspect]
     Indication: GASTRIC PH DECREASED
     Dosage: 1 CAPSULE 1 BEFORE MEAL MORNING ORAL
     Route: 048
     Dates: start: 20090517
  3. LISINOPRIL [Concomitant]
  4. SPIRONOLACTONE [Concomitant]

REACTIONS (2)
  - DEPRESSION [None]
  - DIZZINESS [None]
